FAERS Safety Report 7258528-5 (Version None)
Quarter: 2011Q1

REPORT INFORMATION
  Report Type: 
  Country: None (occurrence: None)
  Receive Date: 20110129
  Receipt Date: 20100525
  Transmission Date: 20110831
  Serious: No
  Sender: FDA-Public Use
  Company Number: US-ABBOTT-10P-163-0647900-00

PATIENT
  Sex: Male
  Weight: 90.8 kg

DRUGS (4)
  1. HUMIRA [Suspect]
     Indication: RHEUMATOID ARTHRITIS
     Route: 058
     Dates: start: 20060901
  2. HUMIRA [Suspect]
     Indication: ANKYLOSING SPONDYLITIS
     Route: 058
     Dates: end: 20100201
  3. LORTAB [Concomitant]
  4. LORTAB [Concomitant]
     Indication: PAIN
     Dosage: PRN OR EVERY 12 HRS UP TO 4 TIMES DAILY
     Route: 048

REACTIONS (4)
  - NECK PAIN [None]
  - LABORATORY TEST ABNORMAL [None]
  - ANKYLOSING SPONDYLITIS [None]
  - BACK PAIN [None]
